FAERS Safety Report 10224800 (Version 1)
Quarter: 2014Q2

REPORT INFORMATION
  Report Type: Spontaneous
  Country: US (occurrence: US)
  Receive Date: 20140609
  Receipt Date: 20140609
  Transmission Date: 20141212
  Serious: Yes (Other)
  Sender: FDA-Public Use
  Company Number: US-GLAXOSMITHKLINE-A0966856A

PATIENT
  Sex: Male

DRUGS (1)
  1. AVANDIA [Suspect]
     Indication: DIABETES MELLITUS
     Route: 048

REACTIONS (5)
  - Injury [Unknown]
  - Cardiac failure congestive [Unknown]
  - Coronary artery bypass [Unknown]
  - Stent placement [Unknown]
  - Myocardial infarction [Unknown]
